FAERS Safety Report 5787493-2 (Version None)
Quarter: 2008Q2

REPORT INFORMATION
  Report Type: 
  Country: None (occurrence: None)
  Receive Date: 20080625
  Receipt Date: 20070927
  Transmission Date: 20081010
  Serious: No
  Sender: FDA-Public Use
  Company Number: US-ASTRAZENECA-2007UW22618

PATIENT
  Sex: Male

DRUGS (1)
  1. PULMICORT TH [Suspect]
     Route: 055

REACTIONS (2)
  - DEVICE MALFUNCTION [None]
  - EXPIRED DRUG ADMINISTERED [None]
